FAERS Safety Report 7073675-9 (Version None)
Quarter: 2010Q4

REPORT INFORMATION
  Report Type: 
  Country: None (occurrence: None)
  Receive Date: 20101029
  Receipt Date: 20101006
  Transmission Date: 20110411
  Serious: No
  Sender: FDA-Public Use
  Company Number: A0872754A

PATIENT
  Age: 64 Year
  Sex: Female

DRUGS (9)
  1. ADVAIR DISKUS 100/50 [Suspect]
     Indication: PRODUCT USED FOR UNKNOWN INDICATION
     Dosage: 1PUFF TWICE PER DAY
     Route: 055
     Dates: start: 20090101
  2. ALENDRONATE SODIUM [Concomitant]
  3. ETODOLAC [Concomitant]
  4. OMEPRAZOLE [Concomitant]
  5. FEXOFENADINE HCL [Concomitant]
  6. SIMVASTATIN [Concomitant]
  7. SINGULAIR [Concomitant]
  8. SPIRONOLACTONE [Concomitant]
  9. PROAIR HFA [Concomitant]

REACTIONS (2)
  - DRUG INEFFECTIVE [None]
  - PRODUCT QUALITY ISSUE [None]
